FAERS Safety Report 7673468-5 (Version None)
Quarter: 2011Q3

REPORT INFORMATION
  Report Type: 
  Country: None (occurrence: None)
  Receive Date: 20110810
  Receipt Date: 20110805
  Transmission Date: 20111222
  Serious: No
  Sender: FDA-Public Use
  Company Number: US-PFIZER INC-2011179948

PATIENT
  Sex: Female
  Weight: 66.667 kg

DRUGS (4)
  1. TIKOSYN [Suspect]
     Indication: POSTOPERATIVE CARE
  2. TIKOSYN [Suspect]
     Indication: STAPHYLOCOCCAL INFECTION
     Dosage: 250 UG, 1X/DAY
     Route: 048
     Dates: start: 20110622
  3. AMLODIPINE [Concomitant]
     Dosage: UNK
  4. ASACOL [Concomitant]
     Dosage: UNK

REACTIONS (2)
  - TREMOR [None]
  - MOVEMENT DISORDER [None]
